FAERS Safety Report 5592377-9 (Version None)
Quarter: 2008Q1

REPORT INFORMATION
  Report Type: 
  Country: None (occurrence: None)
  Receive Date: 20080115
  Receipt Date: 20080109
  Transmission Date: 20080703
  Serious: Yes (Other)
  Sender: FDA-Public Use
  Company Number: US-PFIZER INC-2007088060

PATIENT
  Age: 51 Year
  Sex: Female

DRUGS (1)
  1. GLUCOTROL [Suspect]

REACTIONS (1)
  - LIVER DISORDER [None]
